FAERS Safety Report 13664526 (Version 1)
Quarter: 2017Q2

REPORT INFORMATION
  Report Type: Spontaneous
  Country: US (occurrence: US)
  Receive Date: 20170617
  Receipt Date: 20170617
  Transmission Date: 20170830
  Serious: Yes (Hospitalization)
  Sender: FDA-Public Use
  Company Number: None

PATIENT
  Age: 75 Year
  Sex: Male
  Weight: 60 kg

DRUGS (1)
  1. MEMANTINE HYDROCHLORIDE. [Suspect]
     Active Substance: MEMANTINE HYDROCHLORIDE
     Dates: end: 20170615

REACTIONS (9)
  - Urinary tract infection [None]
  - Failure to thrive [None]
  - Asthenia [None]
  - Dehydration [None]
  - Treatment failure [None]
  - Candida infection [None]
  - Dysphagia [None]
  - Confusional state [None]
  - Oropharyngeal pain [None]

NARRATIVE: CASE EVENT DATE: 20170612
